FAERS Safety Report 21093537 (Version 1)
Quarter: 2022Q3

REPORT INFORMATION
  Report Type: Spontaneous
  Country: US (occurrence: None)
  Receive Date: 20220715
  Receipt Date: 20220715
  Transmission Date: 20221027
  Serious: Yes (Death)
  Sender: FDA-Public Use
  Company Number: None

PATIENT
  Sex: Female

DRUGS (5)
  1. OPDIVO [Suspect]
     Active Substance: NIVOLUMAB
     Indication: Gastric cancer
     Dosage: 240MG/24ML??INFUSE 240 MG INTRAVENOUS EVERY TWO WEEKS? ?
     Route: 042
     Dates: start: 20220125
  2. CLARITIN TAB [Concomitant]
  3. CYMBALTA CAP [Concomitant]
  4. MULTI VITAMI TAB [Concomitant]
  5. RITALIN LA CAP [Concomitant]

REACTIONS (1)
  - Death [None]
